FAERS Safety Report 8576382-6 (Version None)
Quarter: 2012Q3

REPORT INFORMATION
  Report Type: 
  Country: None (occurrence: None)
  Receive Date: 20120807
  Receipt Date: 20120802
  Transmission Date: 20120928
  Serious: Yes (Other)
  Sender: FDA-Public Use
  Company Number: CA-ROCHE-1081086

PATIENT
  Sex: Female

DRUGS (16)
  1. HYDROCHLOROTHIAZDE TAB [Concomitant]
  2. CLONAZEPAM [Concomitant]
  3. NORVASC [Concomitant]
  4. DILAUDID [Concomitant]
  5. PREMARIN [Concomitant]
  6. ZOFRAN [Concomitant]
  7. ZELBORAF [Suspect]
     Route: 048
     Dates: start: 20120730
  8. SYNTHROID [Concomitant]
  9. ASPIRIN [Concomitant]
  10. SENOKOT [Concomitant]
  11. ZELBORAF [Suspect]
     Route: 048
     Dates: start: 20120701
  12. TYLENOL [Concomitant]
  13. CRESTOR [Concomitant]
  14. VITAMIN E [Concomitant]
  15. ZELBORAF [Suspect]
     Indication: METASTATIC MALIGNANT MELANOMA
     Route: 048
     Dates: start: 20120504, end: 20120714
  16. ATENOLOL [Concomitant]

REACTIONS (13)
  - MYALGIA [None]
  - JOINT STIFFNESS [None]
  - ARTHRALGIA [None]
  - SKIN PAPILLOMA [None]
  - ALOPECIA [None]
  - HYPOTENSION [None]
  - RASH [None]
  - HYPOAESTHESIA [None]
  - DECREASED APPETITE [None]
  - FATIGUE [None]
  - EOSINOPHIL COUNT INCREASED [None]
  - SKIN EXFOLIATION [None]
  - OEDEMA [None]
